FAERS Safety Report 5207785-5 (Version None)
Quarter: 2006Q4

REPORT INFORMATION
  Report Type: 
  Country: None (occurrence: None)
  Receive Date: 20061030
  Receipt Date: 20060811
  Transmission Date: 20070319
  Serious: No
  Sender: FDA-Public Use
  Company Number: 256048

PATIENT
  Age: 53 Year
  Sex: Female
  Weight: 81.6 kg

DRUGS (2)
  1. LEVEMIR [Suspect]
     Indication: DIABETES MELLITUS INSULIN-DEPENDENT
     Dosage: 15 IU, BID, SUBCUTANEOUS
     Route: 058
     Dates: start: 20060808
  2. NOVOLOG [Concomitant]

REACTIONS (2)
  - DIARRHOEA [None]
  - HEADACHE [None]
